FAERS Safety Report 23560086 (Version 1)
Quarter: 2024Q1

REPORT INFORMATION
  Report Type: Spontaneous
  Country: BE (occurrence: BE)
  Receive Date: 20240223
  Receipt Date: 20240223
  Transmission Date: 20240410
  Serious: Yes (Other)
  Sender: FDA-Public Use
  Company Number: BE-PFIZER INC-PV202400024568

PATIENT
  Age: 61 Year
  Sex: Female

DRUGS (1)
  1. LORLATINIB [Suspect]
     Active Substance: LORLATINIB
     Indication: Lung neoplasm malignant
     Dosage: 100 MG
     Dates: start: 202205

REACTIONS (8)
  - Hypercholesterolaemia [Unknown]
  - Dupuytren^s contracture [Unknown]
  - Weight increased [Unknown]
  - Increased appetite [Unknown]
  - Eating disorder [Unknown]
  - Apathy [Unknown]
  - Confusional state [Unknown]
  - Disinhibition [Unknown]
